FAERS Safety Report 7874910-7 (Version None)
Quarter: 2011Q4

REPORT INFORMATION
  Report Type: 
  Country: None (occurrence: None)
  Receive Date: 20111003
  Receipt Date: 20110609
  Transmission Date: 20120403
  Serious: Yes (Other)
  Sender: FDA-Public Use
  Company Number: 273878USA

PATIENT
  Age: 56 Year
  Sex: Female

DRUGS (1)
  1. VENLAFAXINE HCL EXTENDED-RELEASE [Suspect]
     Indication: DEPRESSION
     Dosage: 150 MG

REACTIONS (7)
  - PANIC ATTACK [None]
  - NEGATIVE THOUGHTS [None]
  - DEPRESSED MOOD [None]
  - PARAESTHESIA [None]
  - DRUG INEFFECTIVE [None]
  - WITHDRAWAL SYNDROME [None]
  - ANXIETY [None]
